FAERS Safety Report 6066114-8 (Version None)
Quarter: 2009Q1

REPORT INFORMATION
  Report Type: 
  Country: None (occurrence: None)
  Receive Date: 20090205
  Receipt Date: 20090105
  Transmission Date: 20090719
  Serious: No
  Sender: FDA-Public Use
  Company Number: US-BAYER-200910058BCC

PATIENT
  Age: 62 Year
  Sex: Male
  Weight: 87 kg

DRUGS (3)
  1. ALEVE [Suspect]
     Indication: MUSCULOSKELETAL PAIN
     Dosage: TOTAL DAILY DOSE: 440 MG  UNIT DOSE: 220 MG
     Dates: start: 20090104
  2. LISINOPRIL [Concomitant]
  3. MULTI-VITAMIN [Concomitant]

REACTIONS (1)
  - BLOOD PRESSURE INCREASED [None]
